FAERS Safety Report 9125137 (Version 3)
Quarter: 2013Q2

REPORT INFORMATION
  Report Type: Spontaneous
  Country: US (occurrence: US)
  Receive Date: 20130117
  Receipt Date: 20130417
  Transmission Date: 20140414
  Serious: Yes (Other)
  Sender: FDA-Public Use
  Company Number: US-PFIZER INC-2013016287

PATIENT
  Age: 34 Year
  Sex: Male

DRUGS (1)
  1. VIAGRA [Suspect]
     Indication: ERECTILE DYSFUNCTION
     Dosage: STRENGTH 50 MG ? TO 1 AS NEEDED

REACTIONS (2)
  - Memory impairment [Unknown]
  - Drug ineffective [Unknown]
